FAERS Safety Report 13807194 (Version 3)
Quarter: 2018Q1

REPORT INFORMATION
  Report Type: Report from Study
  Country: US (occurrence: US)
  Receive Date: 20170728
  Receipt Date: 20180125
  Transmission Date: 20180508
  Serious: No
  Sender: FDA-Public Use
  Company Number: US-AMGEN-USASL2017093210

PATIENT
  Age: 73 Year
  Sex: Female

DRUGS (2)
  1. REPATHA [Suspect]
     Active Substance: EVOLOCUMAB
     Indication: BLOOD CHOLESTEROL INCREASED
     Dosage: QMO
     Route: 058
     Dates: start: 20170424, end: 20170701
  2. REPATHA [Suspect]
     Active Substance: EVOLOCUMAB
     Indication: HYPERCHOLESTEROLAEMIA

REACTIONS (9)
  - Pain in extremity [Recovered/Resolved]
  - Fluid retention [Recovering/Resolving]
  - Abdominal distension [Recovering/Resolving]
  - Contusion [Recovering/Resolving]
  - Myalgia [Recovering/Resolving]
  - Muscle spasms [Recovering/Resolving]
  - Blood pressure increased [Recovering/Resolving]
  - Paraesthesia [Recovered/Resolved]
  - Restless legs syndrome [Recovering/Resolving]

NARRATIVE: CASE EVENT DATE: 20170425
